FAERS Safety Report 23101171 (Version 4)
Quarter: 2023Q4

REPORT INFORMATION
  Report Type: Spontaneous
  Country: AU (occurrence: AU)
  Receive Date: 20231024
  Receipt Date: 20231120
  Transmission Date: 20240110
  Serious: Yes (Other)
  Sender: FDA-Public Use
  Company Number: AU-GE HEALTHCARE-2023CSU009294

PATIENT
  Age: 3 Year
  Sex: Male

DRUGS (3)
  1. OMNIPAQUE [Suspect]
     Active Substance: IOHEXOL
     Indication: Arthrogram
     Dosage: UNK UNK, SINGLE
     Route: 014
     Dates: start: 20230820, end: 20230820
  2. OMNIPAQUE [Suspect]
     Active Substance: IOHEXOL
     Indication: Closed fracture manipulation
  3. OMNIPAQUE [Suspect]
     Active Substance: IOHEXOL
     Indication: Upper limb fracture

REACTIONS (2)
  - Administration site joint infection [Unknown]
  - Product complaint [Recovered/Resolved]

NARRATIVE: CASE EVENT DATE: 20230820
